FAERS Safety Report 8447984-2 (Version None)
Quarter: 2012Q2

REPORT INFORMATION
  Report Type: 
  Country: None (occurrence: None)
  Receive Date: 20120619
  Receipt Date: 20120608
  Transmission Date: 20120825
  Serious: Yes (Hospitalization)
  Sender: FDA-Public Use
  Company Number: TW-JNJFOC-20120508477

PATIENT
  Sex: Male
  Weight: 66 kg

DRUGS (4)
  1. LEUPROLIDE ACETATE [Concomitant]
     Indication: HORMONE THERAPY
     Route: 065
     Dates: start: 20090401
  2. PREDNISOLONE [Suspect]
     Indication: PROSTATE CANCER METASTATIC
     Route: 048
     Dates: start: 20120323
  3. ABIRATERONE ACETATE [Suspect]
     Indication: PROSTATE CANCER METASTATIC
     Route: 048
     Dates: start: 20120323
  4. ABIRATERONE ACETATE [Suspect]
     Route: 048

REACTIONS (4)
  - FEELING COLD [None]
  - PYREXIA [None]
  - SEPTIC SHOCK [None]
  - UROSEPSIS [None]
